FAERS Safety Report 5129594-8 (Version None)
Quarter: 2006Q4

REPORT INFORMATION
  Report Type: 
  Country: None (occurrence: None)
  Receive Date: 20061012
  Receipt Date: 20060928
  Transmission Date: 20070319
  Serious: Yes (Death)
  Sender: FDA-Public Use
  Company Number: 2006S1007609

PATIENT
  Age: 57 Year
  Sex: Male
  Weight: 73.4827 kg

DRUGS (3)
  1. CLOZAPINE [Suspect]
     Dosage: 400 MG; HS; PO
     Route: 048
     Dates: end: 20060701
  2. RANITIDINE HYDROCHLORIDE [Concomitant]
  3. SERTRALINE [Concomitant]

REACTIONS (1)
  - DEATH [None]
